FAERS Safety Report 22134605 (Version 1)
Quarter: 2023Q1

REPORT INFORMATION
  Report Type: Spontaneous
  Country: US (occurrence: None)
  Receive Date: 20230322
  Receipt Date: 20230322
  Transmission Date: 20230417
  Serious: Yes (Hospitalization)
  Sender: FDA-Public Use
  Company Number: None

PATIENT
  Sex: Male

DRUGS (3)
  1. RINVOQ [Suspect]
     Active Substance: UPADACITINIB
     Indication: Rheumatoid arthritis
     Dosage: 30 MG ORAL?TAKE 1 TABLET BY MOUTH EVERY DAY?
     Route: 048
     Dates: start: 20221006
  2. RINVOQ [Suspect]
     Active Substance: UPADACITINIB
     Dosage: FREQUENCY : DAILY;?
     Route: 048
  3. PREDNISONE [Concomitant]
     Active Substance: PREDNISONE

REACTIONS (1)
  - Bursitis infective [None]

NARRATIVE: CASE EVENT DATE: 20230101
